FAERS Safety Report 25863454 (Version 1)
Quarter: 2025Q3

REPORT INFORMATION
  Report Type: Spontaneous
  Country: EU (occurrence: EU)
  Receive Date: 20250930
  Receipt Date: 20250930
  Transmission Date: 20251020
  Serious: Yes (Death, Other)
  Sender: RANBAXY
  Company Number: EU-SUN PHARMACEUTICAL INDUSTRIES LTD-2025R1-529059

PATIENT
  Age: 77 Year
  Sex: Female

DRUGS (2)
  1. FLUCONAZOLE [Suspect]
     Active Substance: FLUCONAZOLE
     Indication: Antifungal treatment
     Dosage: 100 MILLIGRAM, BID
     Route: 042
  2. MEROPENEM [Suspect]
     Active Substance: MEROPENEM
     Indication: Antifungal treatment
     Dosage: 1 GRAM, TID
     Route: 065

REACTIONS (3)
  - Depressed level of consciousness [Fatal]
  - Respiratory failure [Fatal]
  - Drug ineffective [Unknown]
